FAERS Safety Report 13135980 (Version 5)
Quarter: 2017Q3

REPORT INFORMATION
  Report Type: Spontaneous
  Country: KR (occurrence: KR)
  Receive Date: 20170120
  Receipt Date: 20170802
  Transmission Date: 20171127
  Serious: Yes (Hospitalization)
  Sender: FDA-Public Use
  Company Number: KR-009507513-1701KOR008843

PATIENT
  Age: 57 Year
  Sex: Male
  Weight: 70.5 kg

DRUGS (23)
  1. EMEND (FOSAPREPITANT DIMEGLUMINE) [Suspect]
     Active Substance: FOSAPREPITANT DIMEGLUMINE
     Indication: PROPHYLAXIS OF NAUSEA AND VOMITING
     Dosage: 150 MG, ONCE
     Route: 042
     Dates: start: 20160328, end: 20160328
  2. DEXAMETHASONE SODIUM PHOSPHATE. [Concomitant]
     Active Substance: DEXAMETHASONE SODIUM PHOSPHATE
     Indication: PROPHYLAXIS OF NAUSEA AND VOMITING
     Dosage: STRENGTH: 5 MG/ML; 5 MG, ONCE
     Route: 042
     Dates: start: 20160328, end: 20160328
  3. VIREAD [Concomitant]
     Active Substance: TENOFOVIR DISOPROXIL FUMARATE
     Indication: HEPATITIS B
     Dosage: 1 TABLET, QD
     Route: 048
     Dates: start: 20160325, end: 20160326
  4. DUPHALAC [Concomitant]
     Active Substance: LACTULOSE
     Dosage: 30 ML, THREE TIMES A DAY
     Route: 048
     Dates: start: 20160328, end: 20160330
  5. MACPERAN [Concomitant]
     Active Substance: METOCLOPRAMIDE HYDROCHLORIDE
     Indication: PAIN PROPHYLAXIS
     Dosage: 20 MG, TID
     Route: 042
     Dates: start: 20160328, end: 20160328
  6. DUPHALAC [Concomitant]
     Active Substance: LACTULOSE
     Indication: PROPHYLAXIS
     Dosage: 15 ML, TWICE A DAY
     Route: 048
     Dates: start: 20160326, end: 20160331
  7. PENIRAMIN [Concomitant]
     Indication: PROPHYLAXIS
     Dosage: 2 MG, THREE TIMES A DAY
     Route: 042
     Dates: start: 20160328, end: 20160330
  8. DEXAMETHASONE. [Concomitant]
     Active Substance: DEXAMETHASONE
     Indication: PROPHYLAXIS OF NAUSEA AND VOMITING
     Dosage: 1 MG, QD
     Route: 048
     Dates: start: 20160329, end: 20160330
  9. ALOXI [Concomitant]
     Active Substance: PALONOSETRON HYDROCHLORIDE
     Indication: PROPHYLAXIS OF NAUSEA AND VOMITING
     Dosage: 0.25 MG, ONCE
     Route: 042
     Dates: start: 20160328, end: 20160328
  10. MACPERAN [Concomitant]
     Active Substance: METOCLOPRAMIDE HYDROCHLORIDE
     Dosage: 10 MG, TID
     Route: 042
     Dates: start: 20160329, end: 20160330
  11. CEFOTAXIME SODIUM [Concomitant]
     Active Substance: CEFOTAXIME SODIUM
     Indication: INFECTION PROPHYLAXIS
     Dosage: 2000 MG, TID
     Route: 042
     Dates: start: 20160330, end: 20160330
  12. CISPLAN [Concomitant]
     Active Substance: CISPLATIN
     Indication: HEPATOCELLULAR CARCINOMA
     Dosage: 100 MG, ONCE, CYCLE: 1, ROUTE OD ADMINISTRATION: TRANSARTERIAL
     Route: 050
     Dates: start: 20160328, end: 20160328
  13. ILDONG ARONAMIN C PLUS [Concomitant]
     Indication: PROPHYLAXIS
     Dosage: 1 TABLET, BID
     Route: 048
     Dates: start: 20160325
  14. NEXIUM [Concomitant]
     Active Substance: ESOMEPRAZOLE MAGNESIUM
     Indication: GASTROOESOPHAGEAL REFLUX PROPHYLAXIS
     Dosage: 1 TABLET, QD
     Route: 048
     Dates: start: 20160326
  15. KASHUT [Concomitant]
     Indication: PROPHYLAXIS
     Dosage: 10 G, ONCE, FORMULATION REPORTED AS ^SOLN^
     Route: 048
     Dates: start: 20160326, end: 20160326
  16. DUPHALAC [Concomitant]
     Active Substance: LACTULOSE
     Dosage: 15 ML, THREE TIMES A DAY
     Route: 048
     Dates: start: 20160401, end: 20160402
  17. DUPHALAC [Concomitant]
     Active Substance: LACTULOSE
     Dosage: 30 ML, THREE TIMES A DAY
     Route: 048
     Dates: start: 20160403
  18. PETHIDINE INJECTION BP [Concomitant]
     Indication: PAIN PROPHYLAXIS
     Dosage: 50 MG, ONCE
     Route: 042
     Dates: start: 20160328, end: 20160328
  19. CISPLAN [Concomitant]
     Active Substance: CISPLATIN
     Indication: HEPATOCELLULAR CARCINOMA
     Dosage: 40 MG, ONCE, CYCLE:1, ROUTE OF ADMINISTRATION: TRANSARTERIAL
     Route: 050
     Dates: start: 20160328, end: 20160328
  20. URSA TABLETS [Concomitant]
     Indication: PROPHYLAXIS
     Dosage: 1 TABLET, BID
     Route: 048
     Dates: start: 20160325
  21. PETHIDINE INJECTION BP [Concomitant]
     Dosage: 50 MG, ONCE
     Route: 030
     Dates: start: 20160328, end: 20160328
  22. NEXIUM I.V. [Concomitant]
     Active Substance: ESOMEPRAZOLE SODIUM
     Indication: GASTROOESOPHAGEAL REFLUX PROPHYLAXIS
     Dosage: 40 MG, ONCE
     Route: 042
     Dates: start: 20160328, end: 20160328
  23. MUTERAN [Concomitant]
     Active Substance: ACETYLCYSTEINE
     Indication: PROPHYLAXIS
     Dosage: STRENGTH: 100 MG/ML 10 ML/A; 600 MG, TWICE A DAY
     Route: 042
     Dates: start: 20160328, end: 20160328

REACTIONS (2)
  - Feeling cold [Recovered/Resolved]
  - Pyrexia [Recovered/Resolved]

NARRATIVE: CASE EVENT DATE: 20160330
